FAERS Safety Report 17914244 (Version 1)
Quarter: 2020Q2

REPORT INFORMATION
  Report Type: Spontaneous
  Country: US (occurrence: US)
  Receive Date: 20200618
  Receipt Date: 20200618
  Transmission Date: 20200714
  Serious: Yes (Hospitalization, Other)
  Sender: FDA-Public Use
  Company Number: US-SA-2020SA156729

PATIENT

DRUGS (16)
  1. TAXOTERE [Suspect]
     Active Substance: DOCETAXEL
     Dosage: 75 MG/M2, QCY
     Route: 042
     Dates: start: 20200518, end: 20200518
  2. LIDOCAINE. [Concomitant]
     Active Substance: LIDOCAINE
     Indication: PROPHYLAXIS
     Dosage: UNK
     Dates: start: 20200330
  3. GEMCITABINE HYDROCHLORIDE. [Suspect]
     Active Substance: GEMCITABINE HYDROCHLORIDE
     Indication: SYNOVIAL SARCOMA RECURRENT
     Dosage: 900 MG/M2, QCY
     Route: 042
     Dates: start: 20200318, end: 20200318
  4. LOPERAMIDE [Concomitant]
     Active Substance: LOPERAMIDE
     Dosage: UNK
     Dates: start: 20190708
  5. DEXMETHASONE [Concomitant]
     Active Substance: DEXAMETHASONE
     Dosage: UNK
     Dates: start: 20200318
  6. PEGFILGRASTIM [Concomitant]
     Active Substance: PEGFILGRASTIM
     Indication: PROPHYLAXIS
     Dosage: UNK
     Dates: start: 20200325
  7. GEMCITABINE HYDROCHLORIDE. [Suspect]
     Active Substance: GEMCITABINE HYDROCHLORIDE
     Dosage: 900 MG/M2, QCY
     Route: 042
     Dates: start: 20200527, end: 20200527
  8. ONDANSETRON [Concomitant]
     Active Substance: ONDANSETRON
     Dosage: UNK
     Dates: start: 20200318
  9. TAXOTERE [Suspect]
     Active Substance: DOCETAXEL
     Dosage: 75 MG/M2, QCY
     Route: 042
     Dates: start: 20200527, end: 20200527
  10. RAMUCIRUMAB [Suspect]
     Active Substance: RAMUCIRUMAB
     Dosage: 90 MG/KG, QCY
     Route: 042
     Dates: start: 20200518, end: 20200518
  11. RAMUCIRUMAB [Suspect]
     Active Substance: RAMUCIRUMAB
     Indication: SYNOVIAL SARCOMA RECURRENT
     Dosage: 90 MG/KG, QCY
     Route: 042
     Dates: start: 20200318, end: 20200318
  12. OXYCODONE [Concomitant]
     Active Substance: OXYCODONE
     Indication: SYNOVIAL SARCOMA
     Dosage: UNK
     Dates: start: 20191217
  13. RAMUCIRUMAB [Suspect]
     Active Substance: RAMUCIRUMAB
     Dosage: 90 MG/KG, QCY
     Route: 042
     Dates: start: 20200527, end: 20200527
  14. LORAZEPAM. [Concomitant]
     Active Substance: LORAZEPAM
     Dosage: UNK
     Dates: start: 20200319
  15. TAXOTERE [Suspect]
     Active Substance: DOCETAXEL
     Indication: SYNOVIAL SARCOMA RECURRENT
     Dosage: 75 MG/M2, QCY
     Route: 042
     Dates: start: 20200325, end: 20200325
  16. GEMCITABINE HYDROCHLORIDE. [Suspect]
     Active Substance: GEMCITABINE HYDROCHLORIDE
     Dosage: 900 MG/M2, QCY
     Route: 042
     Dates: start: 20200518, end: 20200518

REACTIONS (4)
  - Dyspnoea [Unknown]
  - Abscess [Unknown]
  - Fatigue [Unknown]
  - Pneumothorax [Recovered/Resolved]

NARRATIVE: CASE EVENT DATE: 20200527
